FAERS Safety Report 6216148-5 (Version None)
Quarter: 2009Q2

REPORT INFORMATION
  Report Type: 
  Country: None (occurrence: None)
  Receive Date: 20090603
  Receipt Date: 20090603
  Transmission Date: 20091009
  Serious: Yes (Other)
  Sender: FDA-Public Use
  Company Number: None

PATIENT
  Age: 66 Year
  Sex: Female
  Weight: 68.2 kg

DRUGS (2)
  1. LEXAPRO [Suspect]
     Indication: DEPRESSION
     Dosage: LEXAPRO 10 MG 1X
     Dates: start: 20081007
  2. KLONOPIN [Concomitant]

REACTIONS (15)
  - ABNORMAL DREAMS [None]
  - AMNESIA [None]
  - ANHEDONIA [None]
  - ANXIETY [None]
  - CONFUSIONAL STATE [None]
  - DEPERSONALISATION [None]
  - DIZZINESS [None]
  - EMOTIONAL DISORDER [None]
  - HYPOAESTHESIA [None]
  - LOSS OF EMPLOYMENT [None]
  - NERVOUS SYSTEM DISORDER [None]
  - PAIN IN EXTREMITY [None]
  - PRODUCT QUALITY ISSUE [None]
  - SCREAMING [None]
  - SOMNOLENCE [None]
